FAERS Safety Report 7294668-2 (Version None)
Quarter: 2011Q1

REPORT INFORMATION
  Report Type: 
  Country: None (occurrence: None)
  Receive Date: 20110203
  Receipt Date: 20110118
  Transmission Date: 20110831
  Serious: Yes (Death, Congenital Anomaly)
  Sender: FDA-Public Use
  Company Number: 026437

PATIENT

DRUGS (4)
  1. PREDNISOLONE SODIUM SUCCINATE INJ [Suspect]
     Dosage: (TRANSPLACENTAL)
     Route: 064
  2. PARACETAMOL [Suspect]
     Dosage: (2.6 G TRANSPLACENTAL)
     Route: 064
  3. DEXTROPROPOXYPHENE [Suspect]
     Dosage: (TRANSPLACENTAL)
     Route: 064
  4. ORAL CONTRACEPTIVE NOS [Suspect]

REACTIONS (3)
  - MATERNAL DRUGS AFFECTING FOETUS [None]
  - ABORTION INDUCED [None]
  - ANENCEPHALY [None]
